FAERS Safety Report 7865022-7 (Version None)
Quarter: 2011Q4

REPORT INFORMATION
  Report Type: 
  Country: None (occurrence: None)
  Receive Date: 20111028
  Receipt Date: 20101001
  Transmission Date: 20120403
  Serious: No
  Sender: FDA-Public Use
  Company Number: US-GLAXOSMITHKLINE-A0884502A

PATIENT
  Age: 69 Year
  Sex: Male

DRUGS (2)
  1. ADVAIR DISKUS 100/50 [Suspect]
  2. LYRICA [Suspect]
     Indication: BACK PAIN
     Dosage: 75MG UNKNOWN
     Route: 065

REACTIONS (1)
  - VISION BLURRED [None]
